APPROVED DRUG PRODUCT: ERGOLOID MESYLATES
Active Ingredient: ERGOLOID MESYLATES
Strength: 1MG
Dosage Form/Route: TABLET;ORAL
Application: A086433 | Product #001
Applicant: WATSON LABORATORIES INC
Approved: May 27, 1982 | RLD: No | RS: No | Type: DISCN